FAERS Safety Report 14251358 (Version 2)
Quarter: 2018Q1

REPORT INFORMATION
  Report Type: Spontaneous
  Country: US (occurrence: US)
  Receive Date: 20171205
  Receipt Date: 20180111
  Transmission Date: 20180508
  Serious: Yes (Other)
  Sender: FDA-Public Use
  Company Number: US-ALLERMED LABORATORIES, INC.-2036693

PATIENT
  Age: 41 Year
  Sex: Male

DRUGS (7)
  1. POLLENS - WEEDS AND GARDEN PLANTS, SAGEBRUSH, MUGWORT ARTEMISIA VULGARIS [Suspect]
     Active Substance: ARTEMISIA VULGARIS POLLEN
     Route: 023
  2. POLLENS - GRASSES, JOHNSON GRASS SORGHUM HALEPENSE [Suspect]
     Active Substance: SORGHUM HALEPENSE POLLEN
     Route: 023
  3. POLLENS - WEEDS, DOCK/SORREL MIX [Suspect]
     Active Substance: RUMEX ACETOSELLA POLLEN\RUMEX CRISPUS POLLEN
     Route: 023
  4. STERILE DILUENT FOR ALLERGENIC EXTRACT (GLYCERIN) [Suspect]
     Active Substance: GLYCERIN
     Route: 023
  5. STERILE DILUENT FOR ALLERGENIC EXTRACT (ALBUMIN HUMAN\PHENOL) [Suspect]
     Active Substance: ALBUMIN HUMAN\PHENOL
     Route: 023
  6. STANDARDIZED BERMUDA GRASS [Suspect]
     Active Substance: CYNODON DACTYLON POLLEN
     Indication: MULTIPLE ALLERGIES
     Route: 023
  7. POLLENS - GRASSES, GS K-O-R-T GRASS MIX [Suspect]
     Active Substance: AGROSTIS GIGANTEA POLLEN\DACTYLIS GLOMERATA POLLEN\PHLEUM PRATENSE POLLEN\POA PRATENSIS POLLEN
     Route: 023

REACTIONS (3)
  - Local reaction [Recovered/Resolved]
  - Accidental overdose [Recovered/Resolved]
  - Anaphylactic reaction [Recovered/Resolved]

NARRATIVE: CASE EVENT DATE: 20170802
